FAERS Safety Report 6416497-1 (Version None)
Quarter: 2009Q4

REPORT INFORMATION
  Report Type: 
  Country: None (occurrence: None)
  Receive Date: 20091027
  Receipt Date: 20091014
  Transmission Date: 20100525
  Serious: Yes (Other)
  Sender: FDA-Public Use
  Company Number: PHHY2009MX44450

PATIENT
  Sex: Female

DRUGS (4)
  1. DIOVAN HCT [Suspect]
     Indication: HYPERTENSION
     Dosage: 0.5 TABLET (160/12.5 MG) DAILY
     Route: 048
     Dates: start: 20060101
  2. VYTORIN [Concomitant]
  3. ACETYLSALICYLIC ACID [Concomitant]
  4. ISCOVER [Concomitant]

REACTIONS (2)
  - FALL [None]
  - NEUROPATHY PERIPHERAL [None]
